FAERS Safety Report 8746030 (Version 5)
Quarter: 2013Q2

REPORT INFORMATION
  Report Type: Spontaneous
  Country: IE (occurrence: IE)
  Receive Date: 20120827
  Receipt Date: 20130506
  Transmission Date: 20140414
  Serious: Yes (Other)
  Sender: FDA-Public Use
  Company Number: IE-JNJFOC-20120810181

PATIENT
  Age: 31 Year
  Sex: Female
  Weight: 83 kg

DRUGS (20)
  1. REMICADE [Suspect]
     Indication: ARTHRITIS
     Route: 042
     Dates: start: 20120622
  2. REMICADE [Suspect]
     Indication: ARTHRITIS
     Route: 042
     Dates: start: 20100216
  3. REMICADE [Suspect]
     Indication: ARTHRITIS
     Route: 042
     Dates: start: 20120817
  4. REMICADE [Suspect]
     Indication: ANKYLOSING SPONDYLITIS
     Route: 042
     Dates: start: 20120622
  5. REMICADE [Suspect]
     Indication: ANKYLOSING SPONDYLITIS
     Route: 042
     Dates: start: 20100216
  6. REMICADE [Suspect]
     Indication: ANKYLOSING SPONDYLITIS
     Route: 042
     Dates: start: 20120817
  7. REMICADE [Suspect]
     Indication: COLITIS
     Route: 042
     Dates: start: 20120622
  8. REMICADE [Suspect]
     Indication: COLITIS
     Route: 042
     Dates: start: 20120817
  9. REMICADE [Suspect]
     Indication: COLITIS
     Route: 042
     Dates: start: 20100216
  10. STEROIDS NOS [Concomitant]
     Route: 065
  11. CHLORPHENAMINE [Concomitant]
     Indication: PREMEDICATION
     Route: 042
  12. HYDROCORTISONE [Concomitant]
     Indication: PREMEDICATION
     Route: 042
  13. IXPRIM [Concomitant]
     Indication: ANALGESIC THERAPY
     Dosage: 325 UNITS
     Route: 065
  14. IXPRIM [Concomitant]
     Indication: PAIN
     Dosage: 325 UNITS
     Route: 065
  15. LEXAPRO [Concomitant]
     Indication: DEPRESSION
     Route: 048
  16. ELTROXIN [Concomitant]
     Indication: HYPOTHYROIDISM
     Route: 048
  17. CALCORT [Concomitant]
     Indication: INFLAMMATION
     Route: 048
  18. LYRICA [Concomitant]
     Indication: PAIN
     Route: 048
  19. CALCICHEW D3 [Concomitant]
     Route: 048
  20. STILNOCT [Concomitant]
     Indication: SEDATION
     Route: 065

REACTIONS (3)
  - Herpes zoster [Unknown]
  - Visual field defect [Recovered/Resolved]
  - Infusion related reaction [Recovered/Resolved]
